FAERS Safety Report 18789055 (Version 1)
Quarter: 2021Q1

REPORT INFORMATION
  Report Type: Spontaneous
  Country: JP (occurrence: JP)
  Receive Date: 20210126
  Receipt Date: 20210126
  Transmission Date: 20210419
  Serious: Yes (Death, Hospitalization)
  Sender: FDA-Public Use
  Company Number: JP-CELGENEUS-JPN-20210105382

PATIENT
  Age: 68 Year
  Sex: Male
  Weight: 55.8 kg

DRUGS (2)
  1. ABRAXANE [Suspect]
     Active Substance: PACLITAXEL
     Indication: SQUAMOUS CELL CARCINOMA OF LUNG
     Route: 041
  2. CARBOPLATIN. [Concomitant]
     Active Substance: CARBOPLATIN
     Indication: SQUAMOUS CELL CARCINOMA OF LUNG
     Route: 041

REACTIONS (7)
  - Pneumothorax [Recovering/Resolving]
  - Hepatic function abnormal [Unknown]
  - Anaemia [Unknown]
  - Pleural infection [Recovering/Resolving]
  - Electrolyte depletion [Unknown]
  - Blood albumin decreased [Unknown]
  - Pneumonia bacterial [Fatal]
